FAERS Safety Report 7399343-1 (Version None)
Quarter: 2011Q1

REPORT INFORMATION
  Report Type: 
  Country: None (occurrence: None)
  Receive Date: 20110329
  Receipt Date: 20110329
  Transmission Date: 20110831
  Serious: Yes (Other)
  Sender: FDA-Public Use
  Company Number: 1022556-2011-00007

PATIENT
  Sex: Male

DRUGS (1)
  1. ASPERCREME HEAT RELIEVING GEL 2.5OZ [Suspect]
     Dosage: TOPICAL
     Route: 061

REACTIONS (1)
  - SCAR [None]
